FAERS Safety Report 13561551 (Version 14)
Quarter: 2019Q1

REPORT INFORMATION
  Report Type: Report from Study
  Country: CA (occurrence: CA)
  Receive Date: 20170518
  Receipt Date: 20190326
  Transmission Date: 20190417
  Serious: Yes (Hospitalization, Other)
  Sender: FDA-Public Use
  Company Number: CA-TAKEDA-2017TUS008489

PATIENT
  Age: 37 Year
  Sex: Female

DRUGS (13)
  1. VEDOLIZUMAB [Suspect]
     Active Substance: VEDOLIZUMAB
     Dosage: 300 MILLIGRAM, Q4WEEKS
     Route: 042
  2. AMOXICILLIN. [Suspect]
     Active Substance: AMOXICILLIN
     Indication: BACTERIAL INFECTION
     Dosage: UNK
     Route: 065
     Dates: start: 20170506
  3. CITALOPRAM [Concomitant]
     Active Substance: CITALOPRAM HYDROBROMIDE
     Dosage: 30 MILLIGRAM, QD
  4. VEDOLIZUMAB [Suspect]
     Active Substance: VEDOLIZUMAB
     Indication: CROHN^S DISEASE
     Dosage: 300 MILLIGRAM
     Route: 042
     Dates: start: 20170203, end: 20170512
  5. TRAMADOL. [Concomitant]
     Active Substance: TRAMADOL
     Dosage: UNK, QD
  6. VEDOLIZUMAB [Suspect]
     Active Substance: VEDOLIZUMAB
     Dosage: 300 MILLIGRAM, Q4WEEKS
     Route: 042
  7. VEDOLIZUMAB [Suspect]
     Active Substance: VEDOLIZUMAB
     Dosage: 300 MILLIGRAM, Q4WEEKS
     Route: 042
  8. VEDOLIZUMAB [Suspect]
     Active Substance: VEDOLIZUMAB
     Dosage: 300 MILLIGRAM, Q4WEEKS
     Route: 042
  9. MORPHINE [Concomitant]
     Active Substance: MORPHINE
     Dosage: UNK, QD
  10. PANTOLOC [Suspect]
     Active Substance: PANTOPRAZOLE SODIUM
     Indication: GASTRIC ULCER
     Dosage: 40 MILLIGRAM, BID
     Route: 065
  11. VEDOLIZUMAB [Suspect]
     Active Substance: VEDOLIZUMAB
     Dosage: 300 MILLIGRAM
     Route: 042
  12. VEDOLIZUMAB [Suspect]
     Active Substance: VEDOLIZUMAB
     Dosage: 300 MILLIGRAM, Q4WEEKS
     Route: 042
     Dates: start: 20170620
  13. VEDOLIZUMAB [Suspect]
     Active Substance: VEDOLIZUMAB
     Dosage: 300 MILLIGRAM, Q4WEEKS
     Route: 042

REACTIONS (18)
  - Diarrhoea [Recovered/Resolved]
  - Feeding disorder [Unknown]
  - Oropharyngeal pain [Not Recovered/Not Resolved]
  - Off label use [Unknown]
  - Nausea [Recovered/Resolved]
  - Umbilical hernia [Unknown]
  - Fistula [Unknown]
  - Enterococcal infection [Recovered/Resolved]
  - Gastroenteritis [Recovering/Resolving]
  - Somnolence [Unknown]
  - Bacterial infection [Unknown]
  - Vomiting [Recovered/Resolved]
  - Abdominal pain upper [Not Recovered/Not Resolved]
  - Drug hypersensitivity [Unknown]
  - Crohn^s disease [Unknown]
  - Abdominal pain [Unknown]
  - Fatigue [Unknown]
  - Ileostomy closure [Unknown]

NARRATIVE: CASE EVENT DATE: 20170504
